FAERS Safety Report 12708298 (Version 1)
Quarter: 2016Q3

REPORT INFORMATION
  Report Type: Report from Study
  Country: NL (occurrence: NL)
  Receive Date: 20160901
  Receipt Date: 20160901
  Transmission Date: 20161109
  Serious: Yes (Other)
  Sender: FDA-Public Use
  Company Number: NL-MYLANLABS-2016M1037070

PATIENT

DRUGS (7)
  1. DIDANOSINE. [Suspect]
     Active Substance: DIDANOSINE
     Indication: PERINATAL HIV INFECTION
     Route: 065
  2. EFAVIRENZ [Concomitant]
     Active Substance: EFAVIRENZ
     Indication: PERINATAL HIV INFECTION
     Route: 065
  3. ZIDOVUDINE. [Concomitant]
     Active Substance: ZIDOVUDINE
     Indication: PERINATAL HIV INFECTION
     Route: 065
  4. STAVUDINE. [Concomitant]
     Active Substance: STAVUDINE
     Indication: PERINATAL HIV INFECTION
     Route: 065
  5. LAMIVUDINE. [Concomitant]
     Active Substance: LAMIVUDINE
     Indication: PERINATAL HIV INFECTION
     Route: 065
  6. ABACAVIR. [Concomitant]
     Active Substance: ABACAVIR
     Indication: PERINATAL HIV INFECTION
     Route: 065
  7. NELFINAVIR [Concomitant]
     Active Substance: NELFINAVIR
     Indication: PERINATAL HIV INFECTION
     Route: 065

REACTIONS (2)
  - Non-cirrhotic portal hypertension [Recovered/Resolved]
  - Gastric varices haemorrhage [Recovered/Resolved]
